FAERS Safety Report 16356581 (Version 2)
Quarter: 2019Q2

REPORT INFORMATION
  Report Type: Spontaneous
  Country: RU (occurrence: RU)
  Receive Date: 20190527
  Receipt Date: 20190605
  Transmission Date: 20190711
  Serious: Yes (Life-Threatening, Hospitalization, Other)
  Sender: FDA-Public Use
  Company Number: RU-SA-2019SA139518

PATIENT
  Sex: Female

DRUGS (1)
  1. CAMPATH [Suspect]
     Active Substance: ALEMTUZUMAB
     Dosage: 12 MG
     Route: 041
     Dates: start: 20190422, end: 20190427

REACTIONS (3)
  - Coma [Not Recovered/Not Resolved]
  - Opportunistic infection [Not Recovered/Not Resolved]
  - Product counterfeit [Not Recovered/Not Resolved]
